FAERS Safety Report 6892581-3 (Version None)
Quarter: 2010Q3

REPORT INFORMATION
  Report Type: 
  Country: None (occurrence: None)
  Receive Date: 20100731
  Receipt Date: 20080708
  Transmission Date: 20110219
  Serious: No
  Sender: FDA-Public Use
  Company Number: US-PFIZER INC-2008038796

PATIENT
  Sex: Female
  Weight: 60.33 kg

DRUGS (3)
  1. DEPO-MEDROL [Suspect]
     Indication: ARTHROPATHY
     Dates: start: 20080408
  2. MARCAINE [Concomitant]
  3. LIDOCAINE [Concomitant]

REACTIONS (1)
  - MOBILITY DECREASED [None]
